FAERS Safety Report 4700150-6 (Version None)
Quarter: 2005Q2

REPORT INFORMATION
  Report Type: 
  Country: None (occurrence: None)
  Receive Date: 20050627
  Receipt Date: 20050614
  Transmission Date: 20051028
  Serious: Yes (Hospitalization)
  Sender: FDA-Public Use
  Company Number: JP-JNJFOC-20050105073

PATIENT
  Sex: Female

DRUGS (11)
  1. REMICADE [Suspect]
     Route: 042
  2. REMICADE [Suspect]
     Indication: RHEUMATOID ARTHRITIS
     Route: 042
  3. RHEUMATREX [Suspect]
     Route: 049
  4. RHEUMATREX [Suspect]
     Route: 049
  5. RHEUMATREX [Suspect]
     Indication: RHEUMATOID ARTHRITIS
     Route: 049
  6. PREDNISOLONE [Concomitant]
     Indication: RHEUMATOID ARTHRITIS
     Route: 049
  7. VOLTAREN [Concomitant]
     Indication: RHEUMATOID ARTHRITIS
     Route: 054
  8. VOLTAREN [Concomitant]
     Indication: RHEUMATOID ARTHRITIS
     Route: 049
  9. FOLIAMIN [Concomitant]
     Route: 049
  10. MUCOSTA [Concomitant]
     Dosage: 3 TABLETS 3 TIMES PER DAY
     Route: 049
  11. CYTOTEC [Concomitant]
     Dosage: 2 TABLETS TWICE DAILY
     Route: 049

REACTIONS (2)
  - PNEUMONITIS CRYPTOCOCCAL [None]
  - URTICARIA [None]
